FAERS Safety Report 6711762-2 (Version None)
Quarter: 2010Q2

REPORT INFORMATION
  Report Type: 
  Country: None (occurrence: None)
  Receive Date: 20100505
  Receipt Date: 20100428
  Transmission Date: 20101027
  Serious: Yes (Hospitalization)
  Sender: FDA-Public Use
  Company Number: A0857957A

PATIENT
  Sex: Male
  Weight: 15 kg

DRUGS (2)
  1. AMOXICILLIN AND CLAVULANATE POTASSIUM [Suspect]
     Indication: SINUSITIS
     Dosage: 4ML TWICE PER DAY
     Route: 065
     Dates: start: 20100423, end: 20100427
  2. ALLEGRA [Concomitant]
     Dosage: 2.5ML TWICE PER DAY
     Dates: start: 20100423

REACTIONS (3)
  - HEADACHE [None]
  - INCORRECT STORAGE OF DRUG [None]
  - PYREXIA [None]
